FAERS Safety Report 4816900-4 (Version None)
Quarter: 2005Q4

REPORT INFORMATION
  Report Type: 
  Country: None (occurrence: None)
  Receive Date: 20051031
  Receipt Date: 20051031
  Transmission Date: 20060501
  Serious: Yes (Hospitalization)
  Sender: FDA-Public Use
  Company Number: None

PATIENT
  Sex: Male

DRUGS (2)
  1. WARFARIN SODIUM [Suspect]
     Indication: ATRIAL FIBRILLATION
     Dosage: 5 MG QD EXCEPT MWF @ 2.5 MG QD
     Dates: start: 19980901
  2. METOPROLOL [Concomitant]

REACTIONS (1)
  - UNEVALUABLE EVENT [None]
